FAERS Safety Report 19160501 (Version 5)
Quarter: 2022Q2

REPORT INFORMATION
  Report Type: Spontaneous
  Country: JP (occurrence: JP)
  Receive Date: 20210421
  Receipt Date: 20220523
  Transmission Date: 20220721
  Serious: Yes (Hospitalization, Other)
  Sender: FDA-Public Use
  Company Number: JP-MSD-2104JPN000841J

PATIENT
  Age: 54 Year
  Sex: Male

DRUGS (1)
  1. KEYTRUDA [Suspect]
     Active Substance: PEMBROLIZUMAB
     Indication: Lung squamous cell carcinoma stage IV
     Dosage: UNK
     Route: 041

REACTIONS (3)
  - Secondary adrenocortical insufficiency [Recovering/Resolving]
  - Type 1 diabetes mellitus [Recovered/Resolved]
  - Immune-mediated hepatitis [Unknown]
